FAERS Safety Report 13001655 (Version 1)
Quarter: 2016Q4

REPORT INFORMATION
  Report Type: Spontaneous
  Country: US (occurrence: US)
  Receive Date: 20161205
  Receipt Date: 20161205
  Transmission Date: 20170207
  Serious: No
  Sender: FDA-Public Use
  Company Number: None

PATIENT
  Age: 31 Year
  Sex: Female

DRUGS (1)
  1. EPCLUSA [Suspect]
     Active Substance: SOFOSBUVIR\VELPATASVIR
     Indication: CHRONIC HEPATITIS C
     Dosage: 400MG- 100MG QD ORAL
     Route: 048
     Dates: start: 20161120

REACTIONS (4)
  - Parosmia [None]
  - Fatigue [None]
  - Dysgeusia [None]
  - Insomnia [None]

NARRATIVE: CASE EVENT DATE: 20161120
